FAERS Safety Report 14512622 (Version 1)
Quarter: 2018Q1

REPORT INFORMATION
  Report Type: Spontaneous
  Country: US (occurrence: US)
  Receive Date: 20180209
  Receipt Date: 20180209
  Transmission Date: 20180509
  Serious: No
  Sender: FDA-Public Use
  Company Number: US-ALLERGAN-1712258US

PATIENT
  Age: 88 Year
  Sex: Female
  Weight: 63.49 kg

DRUGS (3)
  1. RESTASIS [Suspect]
     Active Substance: CYCLOSPORINE
     Indication: DRY EYE
     Dosage: 2 GTT, BID
     Route: 047
     Dates: start: 201703
  2. ZANTAC [Concomitant]
     Active Substance: RANITIDINE HYDROCHLORIDE
     Indication: OESOPHAGEAL DISORDER
     Dosage: UNK UNK, PRN
     Route: 048
  3. HYDROCHLOROTHIAZIDE. [Concomitant]
     Active Substance: HYDROCHLOROTHIAZIDE
     Indication: HYPERTENSION
     Dosage: UNK UNK, PRN
     Route: 048

REACTIONS (3)
  - Product packaging issue [Unknown]
  - Drug dose omission [Unknown]
  - Superficial injury of eye [Recovered/Resolved]

NARRATIVE: CASE EVENT DATE: 201703
